FAERS Safety Report 10076808 (Version 1)
Quarter: 2014Q2

REPORT INFORMATION
  Report Type: Spontaneous
  Country: JP (occurrence: JP)
  Receive Date: 20140414
  Receipt Date: 20140414
  Transmission Date: 20141212
  Serious: Yes (Other)
  Sender: FDA-Public Use
  Company Number: JP-BRISTOL-MYERS SQUIBB COMPANY-20608147

PATIENT
  Sex: 0

DRUGS (1)
  1. BARACLUDE TABS 0.5 MG [Suspect]
     Route: 048

REACTIONS (1)
  - Pneumonia aspiration [Unknown]
